FAERS Safety Report 23619487 (Version 4)
Quarter: 2024Q2

REPORT INFORMATION
  Report Type: Report from Study
  Country: CO (occurrence: CO)
  Receive Date: 20240312
  Receipt Date: 20240627
  Transmission Date: 20240716
  Serious: Yes (Hospitalization, Other)
  Sender: FDA-Public Use
  Company Number: CO-ABBVIE-5674147

PATIENT
  Age: 78 Year
  Sex: Male
  Weight: 65 kg

DRUGS (9)
  1. SKYRIZI [Suspect]
     Active Substance: RISANKIZUMAB-RZAA
     Indication: Psoriasis
     Dosage: FORM STRENGTH: 150 MILLIGRAM
     Route: 058
     Dates: start: 20211130, end: 20231204
  2. SKYRIZI [Suspect]
     Active Substance: RISANKIZUMAB-RZAA
     Dosage: FORM STRENGTH: 150 MILLIGRAM
     Route: 058
  3. TAMSULOSIN HYDROCHLORIDE [Concomitant]
     Active Substance: TAMSULOSIN HYDROCHLORIDE
     Indication: General symptom
     Route: 048
     Dates: start: 202403
  4. DONAPRIL [Concomitant]
     Indication: Hypertension
     Dosage: NOT REPORTED, ?START DATE TEXT: BEFORE SKYRIZI
     Route: 048
  5. AMLODIPINE [Concomitant]
     Active Substance: AMLODIPINE BESYLATE
     Indication: Hypertension
     Dosage: NOT REPORTED, ?START DATE TEXT: BEFORE SKYRIZI
     Route: 048
  6. DAIVOBET [Concomitant]
     Active Substance: BETAMETHASONE DIPROPIONATE\CALCIPOTRIENE
     Indication: Condition aggravated
     Dosage: NOT REPORTED, ?FREQUENCY TEXT: TO NECESSITY?START DATE TEXT: AFTER SKYRIZI?STOP DATE TEXT: FINISHED
     Route: 061
  7. VASELINE PURE [Concomitant]
     Active Substance: PETROLATUM
     Indication: Product used for unknown indication
     Dosage: NOT REPORTED, ?START DATE TEXT: AFTER SKYRIZI?AT NIGHT
     Route: 061
  8. PRAZOSIN [Concomitant]
     Active Substance: PRAZOSIN
     Indication: Hypertension
     Dosage: NOT REPORTED, ?PRODUCT (PRAZOSIN) - START DATE TEXT: BEFORE SKYRIZI
     Route: 048
  9. BISOPROLOL [Concomitant]
     Active Substance: BISOPROLOL\BISOPROLOL FUMARATE
     Indication: Hypertension
     Dosage: PRODUCT (BISOPROLOL) - START DATE TEXT: BEFORE SKYRIZI
     Route: 048

REACTIONS (6)
  - Dysuria [Recovering/Resolving]
  - Weight increased [Unknown]
  - Kidney rupture [Unknown]
  - Renal disorder [Unknown]
  - Kidney small [Unknown]
  - Nephrolithiasis [Recovering/Resolving]

NARRATIVE: CASE EVENT DATE: 20231201
